FAERS Safety Report 4326188-9 (Version None)
Quarter: 2004Q1

REPORT INFORMATION
  Report Type: 
  Country: None (occurrence: None)
  Receive Date: 20040323
  Receipt Date: 20040112
  Transmission Date: 20041129
  Serious: No
  Sender: FDA-Public Use
  Company Number: USA040156313

PATIENT
  Age: 74 Year
  Sex: Male
  Weight: 65 kg

DRUGS (1)
  1. CIALIS [Suspect]
     Dosage: 10 MG/AS NEEDED
     Dates: start: 20031227, end: 20040106

REACTIONS (5)
  - DRUG INEFFECTIVE [None]
  - DYSURIA [None]
  - HEADACHE [None]
  - POLLAKIURIA [None]
  - RENAL PAIN [None]
